FAERS Safety Report 13626356 (Version 1)
Quarter: 2017Q2

REPORT INFORMATION
  Report Type: Spontaneous
  Country: US (occurrence: US)
  Receive Date: 20170531
  Receipt Date: 20170531
  Transmission Date: 20170830
  Serious: Yes (Hospitalization)
  Sender: FDA-Public Use
  Company Number: US-ASTELLAS-1350524

PATIENT
  Sex: Female
  Weight: 52.66 kg

DRUGS (6)
  1. PROPANOLOL [Concomitant]
     Active Substance: PROPRANOLOL HYDROCHLORIDE
  2. TARCEVA [Suspect]
     Active Substance: ERLOTINIB HYDROCHLORIDE
     Indication: BREAST CANCER FEMALE
  3. TRIAMTERENE. [Concomitant]
     Active Substance: TRIAMTERENE
  4. TARCEVA [Suspect]
     Active Substance: ERLOTINIB HYDROCHLORIDE
     Indication: NASAL SINUS CANCER
     Route: 048
     Dates: start: 20130820
  5. CEPHALEXIN. [Concomitant]
     Active Substance: CEPHALEXIN
  6. OMEPRAZOLE. [Concomitant]
     Active Substance: OMEPRAZOLE

REACTIONS (8)
  - Infection [Unknown]
  - Extra dose administered [Unknown]
  - Muscle spasms [Unknown]
  - Food poisoning [Unknown]
  - Accidental overdose [Unknown]
  - Malaise [Unknown]
  - Vomiting [Unknown]
  - Dyspepsia [Unknown]
